FAERS Safety Report 4437873-2 (Version None)
Quarter: 2004Q3

REPORT INFORMATION
  Report Type: 
  Country: None (occurrence: None)
  Receive Date: 20040827
  Receipt Date: 20040811
  Transmission Date: 20050211
  Serious: Yes (Hospitalization)
  Sender: FDA-Public Use
  Company Number: D01200403063

PATIENT
  Age: 69 Year
  Sex: Male
  Weight: 107.2 kg

DRUGS (2)
  1. CISPLATIN [Suspect]
     Indication: SMALL CELL LUNG CANCER EXTENSIVE STAGE
     Dosage: 80 MG/ M2 CONT - INTRAVENOUS NOS
     Route: 042
     Dates: start: 20040804, end: 20040804
  2. ETOPOSIDE [Suspect]
     Indication: SMALL CELL LUNG CANCER EXTENSIVE STAGE
     Dosage: 120 MG/M2 GIVEN ON DAYS 1, 2 AND 3, IN A 30-MINUTE INFUSION  - INTRAVENOUS NOS
     Route: 042
     Dates: start: 20040804, end: 20040806

REACTIONS (3)
  - BLOOD UREA INCREASED [None]
  - HYPOCALCAEMIA [None]
  - TUMOUR LYSIS SYNDROME [None]
